FAERS Safety Report 4764133-2 (Version None)
Quarter: 2005Q3

REPORT INFORMATION
  Report Type: 
  Country: None (occurrence: None)
  Receive Date: 20050908
  Receipt Date: 20050831
  Transmission Date: 20060218
  Serious: Yes (Disabling, Other)
  Sender: FDA-Public Use
  Company Number: US-MERCK-0509USA00161

PATIENT
  Age: 44 Year
  Sex: Male

DRUGS (2)
  1. HYZAAR [Suspect]
     Indication: BLOOD PRESSURE
     Route: 048
  2. COZAAR [Suspect]
     Indication: BLOOD PRESSURE
     Route: 048

REACTIONS (1)
  - ISCHAEMIC STROKE [None]
